FAERS Safety Report 9820149 (Version 1)
Quarter: 2014Q1

REPORT INFORMATION
  Report Type: Spontaneous
  Country: US (occurrence: None)
  Receive Date: 20140113
  Receipt Date: 20140113
  Transmission Date: 20141002
  Serious: Yes (Other)
  Sender: FDA-Public Use
  Company Number: None

PATIENT
  Age: 5 Year
  Sex: Male
  Weight: 20.41 kg

DRUGS (1)
  1. SINGULAIR [Suspect]
     Indication: ASTHMA
     Dosage: 1 DAILY, ONCE DAILY

REACTIONS (6)
  - Abnormal dreams [None]
  - Insomnia [None]
  - Depressed mood [None]
  - Abdominal pain upper [None]
  - Aggression [None]
  - Abnormal behaviour [None]
